FAERS Safety Report 9840292 (Version 1)
Quarter: 2013Q4

REPORT INFORMATION
  Report Type: Spontaneous
  Country: US (occurrence: None)
  Receive Date: 20131211
  Receipt Date: 20131211
  Transmission Date: 20140711
  Serious: Yes (Other)
  Sender: FDA-Public Use
  Company Number: ALL1-2012-05407

PATIENT
  Age: 8 Year
  Sex: Male

DRUGS (1)
  1. VYVANSE (LISDEXAMFETAMINE DIMESYLATE CAPSULE) [Suspect]
     Indication: ATTENTION DEFICIT/HYPERACTIVITY DISORDER
     Dosage: 1X/DAY (EVERY MORNING)
     Route: 048
     Dates: start: 201210, end: 20121026

REACTIONS (1)
  - Hallucinations, mixed [None]
